FAERS Safety Report 5479797-8 (Version None)
Quarter: 2007Q4

REPORT INFORMATION
  Report Type: 
  Country: None (occurrence: None)
  Receive Date: 20071008
  Receipt Date: 20070924
  Transmission Date: 20080405
  Serious: Yes (Other)
  Sender: FDA-Public Use
  Company Number: US-SHR-US-2007-033311

PATIENT
  Age: 59 Year
  Sex: Female

DRUGS (3)
  1. BETASERON [Suspect]
     Route: 058
     Dates: start: 20030720, end: 20050103
  2. BETASERON [Suspect]
     Route: 058
     Dates: start: 20050128, end: 20051215
  3. BETASERON [Suspect]
     Dosage: 8 MIU, EVERY 2D
     Route: 058
     Dates: start: 20060830

REACTIONS (7)
  - ARTHRALGIA [None]
  - CARDIAC FAILURE CONGESTIVE [None]
  - DYSURIA [None]
  - HIP SWELLING [None]
  - INDURATION [None]
  - OEDEMA PERIPHERAL [None]
  - WEIGHT INCREASED [None]
